FAERS Safety Report 5045266-2 (Version None)
Quarter: 2006Q3

REPORT INFORMATION
  Report Type: 
  Country: None (occurrence: None)
  Receive Date: 20060705
  Receipt Date: 20060621
  Transmission Date: 20061208
  Serious: Yes (Hospitalization)
  Sender: FDA-Public Use
  Company Number: CLOF-10256

PATIENT
  Age: 67 Year
  Sex: Male

DRUGS (17)
  1. CLOFARABINE [Suspect]
     Indication: ACUTE MYELOID LEUKAEMIA
     Dosage: 60 MG QD X 5 IV
     Route: 042
     Dates: start: 20051012, end: 20051016
  2. CYTARABINE [Suspect]
     Indication: ACUTE MYELOID LEUKAEMIA
     Dosage: 40 MG QD SC
     Route: 058
     Dates: start: 20051012, end: 20051225
  3. INSULIN [Concomitant]
  4. TEMAZEPAM [Concomitant]
  5. MAGNESIUM [Concomitant]
  6. TYLENOL (CAPLET) [Concomitant]
  7. BENADRYL [Concomitant]
  8. SENNA [Concomitant]
  9. PIPERACILLIN [Concomitant]
  10. FUROSEMIDE [Concomitant]
  11. PANTOPRAZOLE SODIUM [Concomitant]
  12. METOPROLOL TARTRATE [Concomitant]
  13. CHOLECALCIFEROL [Concomitant]
  14. ONDANSETRON HCL [Concomitant]
  15. HYDROMORPHONE HCL [Concomitant]
  16. LINEZOLID [Concomitant]
  17. ERGOCALCIFEROL [Concomitant]

REACTIONS (2)
  - CHOLECYSTITIS ACUTE [None]
  - PAIN [None]
